FAERS Safety Report 13596867 (Version 2)
Quarter: 2018Q2

REPORT INFORMATION
  Report Type: Spontaneous
  Country: PL (occurrence: PL)
  Receive Date: 20170531
  Receipt Date: 20180402
  Transmission Date: 20180711
  Serious: Yes (Hospitalization)
  Sender: FDA-Public Use
  Company Number: PL-SUN PHARMACEUTICAL INDUSTRIES LTD-2016RR-131108

PATIENT
  Age: 32 Year
  Sex: Male

DRUGS (2)
  1. ANESTELOC [Suspect]
     Active Substance: PANTOPRAZOLE SODIUM
     Indication: DUODENAL ULCER
     Dosage: 20 MG, BID
     Route: 048
     Dates: end: 201610
  2. ANESTELOC [Suspect]
     Active Substance: PANTOPRAZOLE SODIUM
     Indication: DUODENAL ULCER
     Dosage: 40 MG, BID
     Route: 048
     Dates: start: 201610, end: 201612

REACTIONS (4)
  - Vomiting [Recovered/Resolved]
  - Weight decreased [Unknown]
  - Abdominal discomfort [Unknown]
  - Nausea [Recovered/Resolved]

NARRATIVE: CASE EVENT DATE: 201610
